FAERS Safety Report 8698002 (Version 3)
Quarter: 2013Q4

REPORT INFORMATION
  Report Type: Spontaneous
  Country: US (occurrence: US)
  Receive Date: 20120801
  Receipt Date: 20131105
  Transmission Date: 20140711
  Serious: Yes (Disabling)
  Sender: FDA-Public Use
  Company Number: US-009507513-1207USA011549

PATIENT
  Age: 43 Year
  Sex: Female

DRUGS (8)
  1. SAPHRIS [Suspect]
     Indication: BIPOLAR DISORDER
     Dosage: UNK
     Route: 060
     Dates: start: 20111005, end: 20120607
  2. SAPHRIS [Suspect]
     Indication: ANXIETY DISORDER
  3. PROZAC [Concomitant]
     Dosage: 80 MG, UNK
  4. PROZAC [Concomitant]
     Dosage: 20 MG, UNK
  5. LORAZEPAM [Concomitant]
     Dosage: 1 MG, TID
  6. METHADONE HYDROCHLORIDE [Concomitant]
     Dosage: 10 MG, QID
  7. SAVELLA [Concomitant]
     Dosage: 50 MG, BID
  8. LAMOTRIGINE [Concomitant]
     Dosage: 300 MG, UNK

REACTIONS (5)
  - Muscle rigidity [Not Recovered/Not Resolved]
  - Tremor [Not Recovered/Not Resolved]
  - Ataxia [Not Recovered/Not Resolved]
  - Parkinson^s disease [Recovering/Resolving]
  - Incorrect route of drug administration [Unknown]
